FAERS Safety Report 6529031-2 (Version None)
Quarter: 2009Q4

REPORT INFORMATION
  Report Type: 
  Country: None (occurrence: None)
  Receive Date: 20091229
  Receipt Date: 20091215
  Transmission Date: 20100525
  Serious: Yes (Hospitalization)
  Sender: FDA-Public Use
  Company Number: 2009AP005074

PATIENT
  Age: 33 Year
  Sex: Male

DRUGS (2)
  1. RISPERIDONE [Suspect]
     Indication: SCHIZOPHRENIA
     Dosage: 2 MG;QD
  2. SERTRALINE HYDROCHLORIDE [Suspect]
     Dosage: 50 MG;QD

REACTIONS (4)
  - EOSINOPHILIC PNEUMONIA [None]
  - PNEUMOTHORAX [None]
  - PULMONARY FIBROSIS [None]
  - RESPIRATORY FAILURE [None]
